FAERS Safety Report 4640238-1 (Version None)
Quarter: 2005Q2

REPORT INFORMATION
  Report Type: 
  Country: None (occurrence: None)
  Receive Date: 20050420
  Receipt Date: 20050407
  Transmission Date: 20051028
  Serious: Yes (Death, Life-Threatening)
  Sender: FDA-Public Use
  Company Number: SE-JNJFOC-20050400025

PATIENT
  Age: 51 Year
  Sex: Male

DRUGS (4)
  1. RISPERDAL [Suspect]
     Indication: MENTAL DISORDER
     Dosage: DOSAGE REGIMEN: 3 MGD MG D
     Route: 049
  2. CITALOPRAM HYDROBROMIDE [Concomitant]
  3. STESOLID [Concomitant]
  4. HERMOLEPSIN RETARD [Concomitant]

REACTIONS (1)
  - MYOCARDIAL INFARCTION [None]
